FAERS Safety Report 8439770-4 (Version None)
Quarter: 2012Q2

REPORT INFORMATION
  Report Type: 
  Country: None (occurrence: None)
  Receive Date: 20120611
  Receipt Date: 20120611
  Transmission Date: 20120825
  Serious: Yes (Other)
  Sender: FDA-Public Use
  Company Number: None

PATIENT
  Age: 77 Year
  Sex: Female
  Weight: 77.1115 kg

DRUGS (1)
  1. LYRICA [Suspect]
     Indication: FIBROMYALGIA
     Dosage: 1 TAB 1 TAB FOR FOUR DAY PO 2 TABS THE PM 1 TAB AM;2 TABS PM PO
     Route: 048
     Dates: start: 20120601, end: 20120609

REACTIONS (7)
  - DRUG INEFFECTIVE [None]
  - MUSCULOSKELETAL PAIN [None]
  - DIZZINESS POSTURAL [None]
  - NECK PAIN [None]
  - FEELING ABNORMAL [None]
  - PAIN [None]
  - NAUSEA [None]
